FAERS Safety Report 9468128 (Version 1)
Quarter: 2013Q3

REPORT INFORMATION
  Report Type: Spontaneous
  Country: ZA (occurrence: ZA)
  Receive Date: 20130821
  Receipt Date: 20130821
  Transmission Date: 20140515
  Serious: Yes (Other)
  Sender: FDA-Public Use
  Company Number: ZA-ABBOTT-13P-143-1133079-00

PATIENT
  Age: 18 Year
  Sex: Female

DRUGS (1)
  1. HUMIRA [Suspect]
     Indication: JUVENILE IDIOPATHIC ARTHRITIS
     Route: 058
     Dates: start: 201106, end: 201212

REACTIONS (6)
  - Blindness transient [Recovered/Resolved]
  - Infectious mononucleosis [Recovered/Resolved]
  - Cystitis [Recovered/Resolved]
  - Blister [Recovered/Resolved]
  - Streptococcal infection [Recovered/Resolved]
  - Staphylococcal infection [Recovered/Resolved]
